FAERS Safety Report 24608517 (Version 1)
Quarter: 2024Q4

REPORT INFORMATION
  Report Type: Spontaneous
  Country: US (occurrence: None)
  Receive Date: 20241112
  Receipt Date: 20241112
  Transmission Date: 20250114
  Serious: Yes (Hospitalization)
  Sender: Public
  Company Number: None

PATIENT
  Age: 57 Year
  Sex: Female
  Weight: 94.5 kg

DRUGS (1)
  1. HERBALS\MITRAGYNINE [Suspect]
     Active Substance: HERBALS\MITRAGYNINE
     Indication: Arthritis

REACTIONS (5)
  - Abdominal pain upper [None]
  - Asthenia [None]
  - Vomiting [None]
  - Feeling cold [None]
  - Influenza like illness [None]

NARRATIVE: CASE EVENT DATE: 20230610
